FAERS Safety Report 15026699 (Version 2)
Quarter: 2018Q3

REPORT INFORMATION
  Report Type: Spontaneous
  Country: ES (occurrence: ES)
  Receive Date: 20180618
  Receipt Date: 20180806
  Transmission Date: 20181010
  Serious: Yes (Other)
  Sender: FDA-Public Use
  Company Number: ES-SA-2018SA140473

PATIENT
  Sex: Female
  Weight: 69 kg

DRUGS (2)
  1. METFORMIN [Concomitant]
     Active Substance: METFORMIN HYDROCHLORIDE
     Indication: TYPE 2 DIABETES MELLITUS
     Dosage: 0.5?0?0.5
  2. LANTUS [Suspect]
     Active Substance: INSULIN GLARGINE
     Indication: TYPE 2 DIABETES MELLITUS
     Dosage: 24 IU, UNK
     Route: 065

REACTIONS (4)
  - Product dispensing error [Unknown]
  - Renal failure [Unknown]
  - Paraesthesia [Recovered/Resolved]
  - Dizziness [Recovered/Resolved]
